FAERS Safety Report 23604200 (Version 2)
Quarter: 2024Q1

REPORT INFORMATION
  Report Type: Spontaneous
  Country: PT (occurrence: PT)
  Receive Date: 20240307
  Receipt Date: 20240321
  Transmission Date: 20240410
  Serious: Yes (Hospitalization, Other)
  Sender: FDA-Public Use
  Company Number: PT-009507513-2403PRT000003

PATIENT
  Sex: Male

DRUGS (2)
  1. PIFELTRO [Suspect]
     Active Substance: DORAVIRINE
     Indication: Antiretroviral therapy
     Route: 048
     Dates: start: 202303
  2. BIKTARVY [Concomitant]
     Active Substance: BICTEGRAVIR SODIUM\EMTRICITABINE\TENOFOVIR ALAFENAMIDE FUMARATE
     Indication: Antiretroviral therapy
     Dosage: UNK
     Dates: start: 202303

REACTIONS (6)
  - Hepatic cirrhosis [Unknown]
  - Hepatic mass [Unknown]
  - Liver disorder [Unknown]
  - Hepatic failure [Unknown]
  - Influenza like illness [Unknown]
  - Respiratory tract infection [Unknown]

NARRATIVE: CASE EVENT DATE: 20231201
